APPROVED DRUG PRODUCT: DIPHENOXYLATE HYDROCHLORIDE W/ ATROPINE SULFATE
Active Ingredient: ATROPINE SULFATE; DIPHENOXYLATE HYDROCHLORIDE
Strength: 0.025MG;2.5MG
Dosage Form/Route: CAPSULE;ORAL
Application: A086440 | Product #001
Applicant: RP SCHERER NORTH AMERICA DIV RP SCHERER CORP
Approved: Approved Prior to Jan 1, 1982 | RLD: No | RS: No | Type: DISCN